FAERS Safety Report 21298735 (Version 1)
Quarter: 2022Q3

REPORT INFORMATION
  Report Type: Spontaneous
  Country: US (occurrence: None)
  Receive Date: 20220905
  Receipt Date: 20220905
  Transmission Date: 20221027
  Serious: Yes (Hospitalization)
  Sender: FDA-Public Use
  Company Number: None

PATIENT
  Age: 71 Year
  Sex: Male
  Weight: 87 kg

DRUGS (2)
  1. RIVAROXABAN [Suspect]
     Active Substance: RIVAROXABAN
     Indication: Atrial fibrillation
     Dosage: FREQUENCY : DAILY;?
     Route: 048
     Dates: start: 20171218, end: 20220512
  2. ASPIRIN [Suspect]
     Active Substance: ASPIRIN
     Indication: Diabetes mellitus
     Dosage: FREQUENCY : DAILY;?
     Route: 048
     Dates: end: 20220512

REACTIONS (5)
  - Blood loss anaemia [None]
  - Haemoglobin decreased [None]
  - Polyp [None]
  - Therapy interrupted [None]
  - Gastric haemorrhage [None]

NARRATIVE: CASE EVENT DATE: 20220512
